FAERS Safety Report 6860356-7 (Version None)
Quarter: 2010Q3

REPORT INFORMATION
  Report Type: 
  Country: None (occurrence: None)
  Receive Date: 20100719
  Receipt Date: 20100719
  Transmission Date: 20110219
  Serious: Yes (Other)
  Sender: FDA-Public Use
  Company Number: None

PATIENT
  Age: 49 Year
  Sex: Male
  Weight: 74.8435 kg

DRUGS (1)
  1. TRAMADOL HCL [Suspect]
     Indication: BACK PAIN
     Dosage: ONE PILL ONE A DAY PO
     Route: 048
     Dates: start: 20091001, end: 20100315

REACTIONS (9)
  - CLUMSINESS [None]
  - CONCUSSION [None]
  - DEPRESSION [None]
  - FEELING ABNORMAL [None]
  - HEAD INJURY [None]
  - NAUSEA [None]
  - NERVE INJURY [None]
  - SOCIAL AVOIDANT BEHAVIOUR [None]
  - WEIGHT DECREASED [None]
